FAERS Safety Report 7491156-5 (Version None)
Quarter: 2011Q2

REPORT INFORMATION
  Report Type: 
  Country: None (occurrence: None)
  Receive Date: 20110518
  Receipt Date: 20110518
  Transmission Date: 20111010
  Serious: Yes (Other)
  Sender: FDA-Public Use
  Company Number: None

PATIENT
  Age: 91 Year
  Sex: Female
  Weight: 50.8029 kg

DRUGS (1)
  1. ARICEPT [Suspect]
     Indication: DEMENTIA ALZHEIMER'S TYPE
     Dosage: 20 MG QD PO
     Route: 048
     Dates: start: 20080101, end: 20110301

REACTIONS (11)
  - GRAND MAL CONVULSION [None]
  - OVERDOSE [None]
  - SIMPLE PARTIAL SEIZURES [None]
  - CEREBROVASCULAR ACCIDENT [None]
  - URINE OUTPUT DECREASED [None]
  - POOR PERIPHERAL CIRCULATION [None]
  - PETIT MAL EPILEPSY [None]
  - APHASIA [None]
  - APHAGIA [None]
  - OLIGODIPSIA [None]
  - GAIT DISTURBANCE [None]
